FAERS Safety Report 7572772-9 (Version None)
Quarter: 2011Q2

REPORT INFORMATION
  Report Type: 
  Country: None (occurrence: None)
  Receive Date: 20110627
  Receipt Date: 20110623
  Transmission Date: 20111010
  Serious: No
  Sender: FDA-Public Use
  Company Number: US-PFIZER INC-2011139966

PATIENT
  Sex: Female
  Weight: 58.957 kg

DRUGS (3)
  1. ADVIL LIQUI-GELS [Suspect]
     Indication: MYALGIA
     Dosage: 200 MG, 4X/DAY
     Route: 048
     Dates: start: 20110601, end: 20110601
  2. METFORMIN [Concomitant]
     Indication: DIABETES MELLITUS
     Dosage: UNK, DAILY
     Route: 048
  3. ADVIL LIQUI-GELS [Suspect]
     Dosage: 200 MG, 1X/DAY
     Dates: start: 20110601

REACTIONS (1)
  - CHROMATURIA [None]
